FAERS Safety Report 24749412 (Version 1)
Quarter: 2024Q4

REPORT INFORMATION
  Report Type: Spontaneous
  Country: US (occurrence: None)
  Receive Date: 20241218
  Receipt Date: 20241218
  Transmission Date: 20250115
  Serious: Yes (Life-Threatening, Hospitalization)
  Sender: Public
  Company Number: None

PATIENT
  Age: 63 Year
  Sex: Male
  Weight: 123.1 kg

DRUGS (1)
  1. OZEMPIC [Suspect]
     Active Substance: SEMAGLUTIDE
     Indication: Diabetes mellitus
     Dates: start: 20240625, end: 20241204

REACTIONS (1)
  - Pancreatitis necrotising [None]

NARRATIVE: CASE EVENT DATE: 20241204
